FAERS Safety Report 8548938-8 (Version None)
Quarter: 2012Q3

REPORT INFORMATION
  Report Type: 
  Country: None (occurrence: None)
  Receive Date: 20120730
  Receipt Date: 20120719
  Transmission Date: 20120928
  Serious: Yes (Death, Hospitalization)
  Sender: FDA-Public Use
  Company Number: US-BRISTOL-MYERS SQUIBB COMPANY-16784258

PATIENT
  Age: 24 Year
  Sex: Female
  Weight: 51 kg

DRUGS (11)
  1. SPRYCEL [Suspect]
     Indication: ACUTE LYMPHOCYTIC LEUKAEMIA
     Dosage: LAST DOSE ON 26JUN12
     Route: 048
     Dates: start: 20120517
  2. CYTARABINE [Suspect]
     Indication: ACUTE LYMPHOCYTIC LEUKAEMIA
     Dosage: LAST DOSE:17JUN12 ROUTE:INTRA OMMYA
     Dates: start: 20120517
  3. VINCRISTINE SULFATE [Suspect]
     Indication: ACUTE LYMPHOCYTIC LEUKAEMIA
     Dosage: LAST DOSE:17JUN12
     Route: 042
     Dates: start: 20120517
  4. FILGRASTIM [Suspect]
     Indication: ACUTE LYMPHOCYTIC LEUKAEMIA
     Dosage: LAST DOSE:18JUN12
     Route: 058
     Dates: start: 20120517, end: 20120101
  5. LEUCOVORIN CALCIUM [Suspect]
     Indication: ACUTE LYMPHOCYTIC LEUKAEMIA
     Dosage: LAST DOSE :21MAY12
     Route: 042
     Dates: start: 20120517
  6. METHOTREXATE [Suspect]
     Indication: ACUTE LYMPHOCYTIC LEUKAEMIA
     Dosage: LAST DOSE:13JUN12
     Route: 042
     Dates: start: 20120517
  7. DEXAMETHASONE [Suspect]
     Indication: ACUTE LYMPHOCYTIC LEUKAEMIA
     Dosage: LAST DOSE:16JUN12
     Route: 048
     Dates: start: 20120517
  8. DOXORUBICIN HCL [Suspect]
     Indication: ACUTE LYMPHOCYTIC LEUKAEMIA
     Dosage: LAST DOSE:17JUN12
     Route: 042
     Dates: start: 20120517
  9. MESNA [Suspect]
     Indication: ACUTE LYMPHOCYTIC LEUKAEMIA
     Dosage: LAST DOSE:17JUN12
     Route: 042
     Dates: start: 20120517
  10. CYCLOPHOSPHAMIDE [Suspect]
     Indication: ACUTE LYMPHOCYTIC LEUKAEMIA
     Dosage: LAST DOSE ON 16JUN12
     Route: 042
     Dates: start: 20120517
  11. METHYLPREDNISOLONE [Suspect]
     Indication: ACUTE LYMPHOCYTIC LEUKAEMIA
     Dosage: LAST DOSE:21MAY12
     Route: 042
     Dates: start: 20120517

REACTIONS (20)
  - NEPHROLITHIASIS [None]
  - DISSEMINATED INTRAVASCULAR COAGULATION [None]
  - CARDIAC ARREST [None]
  - ACIDOSIS [None]
  - SKIN DISCOLOURATION [None]
  - HYPOTENSION [None]
  - SOFT TISSUE INFECTION [None]
  - GASTROINTESTINAL NECROSIS [None]
  - SEPSIS [None]
  - FLANK PAIN [None]
  - ABDOMINAL PAIN [None]
  - SINUS TACHYCARDIA [None]
  - COLITIS [None]
  - ECCHYMOSIS [None]
  - WHITE BLOOD CELL COUNT DECREASED [None]
  - ANAEMIA [None]
  - EMPHYSEMA [None]
  - CLOSTRIDIAL INFECTION [None]
  - HYPERKALAEMIA [None]
  - CONDITION AGGRAVATED [None]
